FAERS Safety Report 8509390-1 (Version None)
Quarter: 2012Q3

REPORT INFORMATION
  Report Type: 
  Country: None (occurrence: None)
  Receive Date: 20120713
  Receipt Date: 20120528
  Transmission Date: 20120928
  Serious: Yes (Hospitalization)
  Sender: FDA-Public Use
  Company Number: ZA-ROCHE-1087181

PATIENT
  Age: 40 Year
  Sex: Male

DRUGS (2)
  1. VALCYTE [Suspect]
     Indication: TRANSPLANT
     Route: 048
     Dates: start: 20120223
  2. CELLCEPT [Suspect]
     Indication: TRANSPLANT
     Route: 048
     Dates: start: 20120223

REACTIONS (1)
  - ELECTROLYTE IMBALANCE [None]
